FAERS Safety Report 5339352-7 (Version None)
Quarter: 2007Q2

REPORT INFORMATION
  Report Type: 
  Country: None (occurrence: None)
  Receive Date: 20070322
  Receipt Date: 20070130
  Transmission Date: 20071010
  Serious: Yes (Other)
  Sender: FDA-Public Use
  Company Number: 200615078BCC

PATIENT
  Age: 35 Year
  Sex: Male
  Weight: 113.3993 kg

DRUGS (6)
  1. ALEVE COLD AND SINUS [Suspect]
     Indication: PHARYNGOLARYNGEAL PAIN
     Dosage: SEE IMAGE
     Route: 048
     Dates: start: 20061220
  2. ALEVE COLD AND SINUS [Suspect]
     Indication: SINUS HEADACHE
     Dosage: SEE IMAGE
     Route: 048
     Dates: start: 20061220
  3. ALEVE COLD AND SINUS [Suspect]
     Indication: PHARYNGOLARYNGEAL PAIN
     Dosage: SEE IMAGE
     Route: 048
     Dates: start: 20061221
  4. ALEVE COLD AND SINUS [Suspect]
     Indication: SINUS HEADACHE
     Dosage: SEE IMAGE
     Route: 048
     Dates: start: 20061221
  5. ALEVE COLD AND SINUS [Suspect]
     Indication: PHARYNGOLARYNGEAL PAIN
     Dosage: SEE IMAGE
     Route: 048
     Dates: start: 20061222
  6. ALEVE COLD AND SINUS [Suspect]
     Indication: SINUS HEADACHE
     Dosage: SEE IMAGE
     Route: 048
     Dates: start: 20061222

REACTIONS (2)
  - BLOOD URINE PRESENT [None]
  - CONSTIPATION [None]
